FAERS Safety Report 5001969-7 (Version None)
Quarter: 2006Q2

REPORT INFORMATION
  Report Type: 
  Country: None (occurrence: None)
  Receive Date: 20060515
  Receipt Date: 20060210
  Transmission Date: 20061013
  Serious: Yes (Hospitalization, Disabling)
  Sender: FDA-Public Use
  Company Number: US-MERCK-0602USA04159

PATIENT
  Age: 54 Year
  Sex: Female
  Weight: 59 kg

DRUGS (1)
  1. VIOXX [Suspect]
     Indication: ARTHRITIS
     Route: 048
     Dates: start: 19990601, end: 20020830

REACTIONS (5)
  - DISLOCATION OF VERTEBRA [None]
  - HUMAN BITE [None]
  - MYOCARDIAL INFARCTION [None]
  - NERVE COMPRESSION [None]
  - POLYP COLORECTAL [None]
